FAERS Safety Report 5454153-7 (Version None)
Quarter: 2007Q3

REPORT INFORMATION
  Report Type: 
  Country: None (occurrence: None)
  Receive Date: 20070917
  Receipt Date: 20070531
  Transmission Date: 20080115
  Serious: Yes (Other)
  Sender: FDA-Public Use
  Company Number: US-ASTRAZENECA-2006UW11362

PATIENT
  Age: 573 Month
  Sex: Female
  Weight: 85.9 kg

DRUGS (5)
  1. SEROQUEL [Suspect]
     Indication: DEPRESSION
     Dosage: 200 MG - 300 MG
     Route: 048
     Dates: start: 20040601, end: 20041201
  2. SEROQUEL [Suspect]
     Indication: ANXIETY
     Dosage: 200 MG - 300 MG
     Route: 048
     Dates: start: 20040601, end: 20041201
  3. DEPAKOTE [Concomitant]
  4. EFFEXOR [Concomitant]
  5. AMBIEN [Concomitant]

REACTIONS (2)
  - DIABETES MELLITUS [None]
  - DIABETIC KETOACIDOSIS [None]
